FAERS Safety Report 24298931 (Version 1)
Quarter: 2024Q3

REPORT INFORMATION
  Report Type: Spontaneous
  Country: US (occurrence: None)
  Receive Date: 20240907
  Receipt Date: 20240907
  Transmission Date: 20241017
  Serious: Yes (Death)
  Sender: Public
  Company Number: None

PATIENT
  Age: 85 Year
  Sex: Male
  Weight: 75.6 kg

DRUGS (1)
  1. VIDAZA [Suspect]
     Active Substance: AZACITIDINE
     Indication: Myelodysplastic syndrome
     Dosage: OTHER ROUTE : INJECTION;?
     Route: 050
     Dates: start: 20240122, end: 20240225

REACTIONS (3)
  - Immune system disorder [None]
  - Sudden death [None]
  - Septic shock [None]

NARRATIVE: CASE EVENT DATE: 20240225
